FAERS Safety Report 24427138 (Version 2)
Quarter: 2024Q4

REPORT INFORMATION
  Report Type: Spontaneous
  Country: US (occurrence: US)
  Receive Date: 20241011
  Receipt Date: 20241011
  Transmission Date: 20250115
  Serious: Yes (Other)
  Sender: ABBVIE
  Company Number: US-IMMUNOGEN, INC.-US-IMGN-24-00612

PATIENT
  Age: 64 Year
  Sex: Female
  Weight: 56.6 kg

DRUGS (3)
  1. ELAHERE [Suspect]
     Active Substance: MIRVETUXIMAB SORAVTANSINE-GYNX
     Indication: Ovarian cancer
     Dosage: TOTAL 9 DOSES RECEIVED.  FORM STRENGTH  5 MG/ML
     Route: 042
     Dates: start: 20240123, end: 202406
  2. ELAHERE [Suspect]
     Active Substance: MIRVETUXIMAB SORAVTANSINE-GYNX
     Indication: Ovarian cancer
     Dosage: TOTAL 9 DOSES RECEIVED.  FORM STRENGTH 5 MG/ML. DOSE REDUCED
     Route: 042
     Dates: start: 202406
  3. PREDNISONE [Concomitant]
     Active Substance: PREDNISONE
     Indication: Eye disorder
     Route: 047

REACTIONS (3)
  - Cataract [Recovering/Resolving]
  - Cataract [Not Recovered/Not Resolved]
  - Platelet count decreased [Recovering/Resolving]

NARRATIVE: CASE EVENT DATE: 20240601
